FAERS Safety Report 5218271-0 (Version None)
Quarter: 2007Q1

REPORT INFORMATION
  Report Type: 
  Country: None (occurrence: None)
  Receive Date: 20061130
  Receipt Date: 20060710
  Transmission Date: 20070707
  Serious: Yes (Hospitalization)
  Sender: FDA-Public Use
  Company Number: US200603000893

PATIENT
  Sex: Male
  Weight: 111.1 kg

DRUGS (7)
  1. ZYPREXA [Suspect]
     Indication: MENTAL DISORDER
     Dosage: SEE IMAGE
     Dates: start: 20010501, end: 20030901
  2. ABILIFY [Concomitant]
  3. CLOZARIL [Concomitant]
  4. SEROQUEL /UNK/ (QUETIAPINE FUMARATE) [Concomitant]
  5. HALOPERIDOL [Concomitant]
  6. DIVALPROEX SODIUM [Concomitant]
  7. LITHIUM CARBONATE [Concomitant]

REACTIONS (2)
  - DIABETES MELLITUS [None]
  - DIABETIC COMA [None]
